FAERS Safety Report 4684643-6 (Version None)
Quarter: 2005Q2

REPORT INFORMATION
  Report Type: 
  Country: None (occurrence: None)
  Receive Date: 20050603
  Receipt Date: 20050526
  Transmission Date: 20051028
  Serious: Yes (Other)
  Sender: FDA-Public Use
  Company Number: S05-USA-02256-01

PATIENT
  Age: 56 Year
  Sex: Female

DRUGS (10)
  1. LEXAPRO [Suspect]
     Indication: ANXIETY
     Dosage: 20 MG QD PO
     Route: 048
     Dates: start: 20041001
  2. LEXAPRO [Suspect]
     Indication: MAJOR DEPRESSION
     Dosage: 20 MG QD PO
     Route: 048
     Dates: start: 20041001
  3. RISPERDAL [Suspect]
     Indication: HALLUCINATION, AUDITORY
     Dates: start: 20041001, end: 20050418
  4. LIPITOR [Concomitant]
  5. LASIX [Concomitant]
  6. TENORMIN [Concomitant]
  7. PREVACID [Concomitant]
  8. HUMALOG [Concomitant]
  9. LANTUS [Concomitant]
  10. IRON [Concomitant]

REACTIONS (7)
  - ANXIETY [None]
  - FALL [None]
  - HYPOTENSION [None]
  - LOSS OF CONSCIOUSNESS [None]
  - NAUSEA [None]
  - NERVOUSNESS [None]
  - TREMOR [None]
